FAERS Safety Report 15407160 (Version 1)
Quarter: 2018Q4

REPORT INFORMATION
  Report Type: Spontaneous
  Country: US (occurrence: US)
  Receive Date: 20180920
  Receipt Date: 20180920
  Transmission Date: 20190204
  Serious: No
  Sender: FDA-Public Use
  Company Number: US-AKRON, INC.-2055167

PATIENT
  Sex: Female

DRUGS (1)
  1. KETOTIFEM FUMARATE OPHTHALMIC SOLUTION [Suspect]
     Active Substance: KETOTIFEN FUMARATE
     Route: 047

REACTIONS (1)
  - Drug ineffective [Unknown]
